FAERS Safety Report 18589095 (Version 3)
Quarter: 2020Q4

REPORT INFORMATION
  Report Type: Spontaneous
  Country: DE (occurrence: DE)
  Receive Date: 20201208
  Receipt Date: 20201225
  Transmission Date: 20210114
  Serious: Yes (Death, Other)
  Sender: FDA-Public Use
  Company Number: DE-ROCHE-2723482

PATIENT
  Age: 34 Year
  Sex: Female

DRUGS (10)
  1. LEMTRADA [Suspect]
     Active Substance: ALEMTUZUMAB
     Indication: PRODUCT USED FOR UNKNOWN INDICATION
     Dosage: 12 UNK
     Route: 042
     Dates: start: 201902
  2. LEMTRADA [Suspect]
     Active Substance: ALEMTUZUMAB
     Dosage: 12 UNK
     Route: 042
     Dates: start: 201501
  3. LEMTRADA [Suspect]
     Active Substance: ALEMTUZUMAB
     Dosage: 12 UNK
     Route: 042
     Dates: start: 201401
  4. METOPROLOL. [Concomitant]
     Active Substance: METOPROLOL
     Indication: MIGRAINE PROPHYLAXIS
     Dosage: 25 MG, BID
     Dates: start: 202001
  5. OCREVUS [Suspect]
     Active Substance: OCRELIZUMAB
     Route: 065
     Dates: start: 202004
  6. OCREVUS [Suspect]
     Active Substance: OCRELIZUMAB
     Indication: PRODUCT USED FOR UNKNOWN INDICATION
     Route: 065
     Dates: start: 201910
  7. IBUPROFEN. [Concomitant]
     Active Substance: IBUPROFEN
  8. CORTISONE [Concomitant]
     Active Substance: CORTISONE
     Dosage: UNK
     Dates: start: 201909
  9. LEMTRADA [Suspect]
     Active Substance: ALEMTUZUMAB
     Dosage: 12 UNK
     Route: 042
     Dates: start: 201701
  10. OCREVUS [Suspect]
     Active Substance: OCRELIZUMAB
     Route: 065
     Dates: start: 202009

REACTIONS (12)
  - Gait disturbance [Unknown]
  - Sepsis [Fatal]
  - Multiple sclerosis relapse [Unknown]
  - Paraparesis [Not Recovered/Not Resolved]
  - T-lymphocyte count decreased [Unknown]
  - Drug hypersensitivity [Unknown]
  - B-lymphocyte count decreased [Unknown]
  - Visual impairment [Unknown]
  - Paraplegia [Not Recovered/Not Resolved]
  - Computerised tomogram head abnormal [Recovering/Resolving]
  - Spinal myelogram abnormal [Unknown]
  - Multiple sclerosis [Unknown]

NARRATIVE: CASE EVENT DATE: 2019
